FAERS Safety Report 10286206 (Version 4)
Quarter: 2014Q4

REPORT INFORMATION
  Report Type: Spontaneous
  Country: US (occurrence: None)
  Receive Date: 20140707
  Receipt Date: 20141124
  Transmission Date: 20150528
  Serious: Yes (Other)
  Sender: FDA-Public Use
  Company Number: ADR-2014-01151

PATIENT
  Age: 22 Year
  Sex: Male

DRUGS (12)
  1. LIORESAL [Suspect]
     Active Substance: BACLOFEN
  2. PROMETHAZINE [Suspect]
     Active Substance: PROMETHAZINE\PROMETHAZINE HYDROCHLORIDE
  3. ALBUTEROL. [Suspect]
     Active Substance: ALBUTEROL
  4. LORTAB [Suspect]
     Active Substance: ACETAMINOPHEN\HYDROCODONE BITARTRATE
  5. ZONISAMIDE. [Suspect]
     Active Substance: ZONISAMIDE
  6. ZANAFLEX [Suspect]
     Active Substance: TIZANIDINE HYDROCHLORIDE
  7. MIRALAX [Suspect]
     Active Substance: POLYETHYLENE GLYCOL 3350
  8. VIMPAT [Suspect]
     Active Substance: LACOSAMIDE
  9. DESMOPRESSIN [Suspect]
     Active Substance: DESMOPRESSIN
  10. BACLOFEN. [Suspect]
     Active Substance: BACLOFEN
     Indication: MUSCLE SPASTICITY
  11. VITAMIN C [Suspect]
     Active Substance: ASCORBIC ACID
  12. JEVITY [Suspect]
     Active Substance: DIETARY SUPPLEMENT

REACTIONS (15)
  - Implant site rash [None]
  - Implant site infection [None]
  - Scratch [None]
  - Implant site discolouration [None]
  - Implant site swelling [None]
  - Implant site pruritus [None]
  - Hypertonia [None]
  - Device allergy [None]
  - No therapeutic response [None]
  - Drug withdrawal syndrome [None]
  - Muscle spasticity [None]
  - Implant site cellulitis [None]
  - Implant site erythema [None]
  - Pyrexia [None]
  - Incision site infection [None]

NARRATIVE: CASE EVENT DATE: 20140611
